FAERS Safety Report 12256864 (Version 1)
Quarter: 2016Q2

REPORT INFORMATION
  Report Type: Spontaneous
  Country: US (occurrence: US)
  Receive Date: 20160412
  Receipt Date: 20160412
  Transmission Date: 20160815
  Serious: Yes (Other)
  Sender: FDA-Public Use
  Company Number: US-GLAXOSMITHKLINE-US2016GSK047455

PATIENT
  Age: 72 Year
  Sex: Male

DRUGS (1)
  1. CARVEDILOL PHOSPHATE. [Suspect]
     Active Substance: CARVEDILOL PHOSPHATE
     Indication: MYOCARDIAL INFARCTION
     Dosage: UNK
     Dates: start: 2015

REACTIONS (4)
  - Amnesia [Unknown]
  - Memory impairment [Unknown]
  - Drug dose omission [Unknown]
  - Vascular graft [Unknown]

NARRATIVE: CASE EVENT DATE: 201508
